FAERS Safety Report 5809422-5 (Version None)
Quarter: 2008Q3

REPORT INFORMATION
  Report Type: 
  Country: None (occurrence: None)
  Receive Date: 20080715
  Receipt Date: 20080530
  Transmission Date: 20090109
  Serious: No
  Sender: FDA-Public Use
  Company Number: US-BAYER-200825512NA

PATIENT
  Age: 57 Year
  Sex: Female
  Weight: 124 kg

DRUGS (1)
  1. MAGNEVIST [Suspect]
     Indication: NUCLEAR MAGNETIC RESONANCE IMAGING
     Dosage: TOTAL DAILY DOSE: 20 ML  UNIT DOSE: 20 ML
     Route: 042
     Dates: start: 20080217, end: 20080217

REACTIONS (6)
  - ANAPHYLACTIC REACTION [None]
  - LACRIMATION INCREASED [None]
  - NASAL DISCOMFORT [None]
  - OEDEMA PERIPHERAL [None]
  - RASH [None]
  - SNEEZING [None]
